FAERS Safety Report 16226599 (Version 1)
Quarter: 2019Q2

REPORT INFORMATION
  Report Type: Spontaneous
  Country: US (occurrence: US)
  Receive Date: 20190423
  Receipt Date: 20190423
  Transmission Date: 20190711
  Serious: No
  Sender: FDA-Public Use
  Company Number: US-TEVA-2019-US-1039403

PATIENT
  Sex: Male

DRUGS (1)
  1. ZALEPLON. [Suspect]
     Active Substance: ZALEPLON
     Indication: INSOMNIA
     Route: 065

REACTIONS (1)
  - Terminal insomnia [Unknown]
